FAERS Safety Report 6633584-3 (Version None)
Quarter: 2010Q1

REPORT INFORMATION
  Report Type: 
  Country: None (occurrence: None)
  Receive Date: 20100312
  Receipt Date: 20091207
  Transmission Date: 20100710
  Serious: No
  Sender: FDA-Public Use
  Company Number: US-ABBOTT-09P-163-0613978-00

PATIENT
  Age: 63 Year
  Sex: Female

DRUGS (1)
  1. ERYTHROMYCIN [Suspect]
     Indication: BRONCHITIS
     Route: 048
     Dates: start: 19940101, end: 19940101

REACTIONS (3)
  - DYSPNOEA [None]
  - FEELING ABNORMAL [None]
  - HEADACHE [None]
